FAERS Safety Report 22083548 (Version 1)
Quarter: 2023Q1

REPORT INFORMATION
  Report Type: Report from Study
  Country: ES (occurrence: None)
  Receive Date: 20230310
  Receipt Date: 20230310
  Transmission Date: 20230418
  Serious: Yes (Hospitalization, Other)
  Sender: FDA-Public Use
  Company Number: ES-Eisai Medical Research-EC-2023-135551

PATIENT
  Age: 63 Year
  Sex: Male
  Weight: 89 kg

DRUGS (13)
  1. LENVATINIB [Suspect]
     Active Substance: LENVATINIB
     Indication: Hepatocellular carcinoma
     Route: 048
     Dates: start: 20220221, end: 20220316
  2. LENVATINIB [Suspect]
     Active Substance: LENVATINIB
     Route: 048
     Dates: start: 20220422, end: 20220621
  3. LENVATINIB [Suspect]
     Active Substance: LENVATINIB
     Route: 048
     Dates: start: 20220718, end: 2022
  4. LENVATINIB [Suspect]
     Active Substance: LENVATINIB
     Route: 048
     Dates: start: 20220810, end: 20220901
  5. FUROSEMIDE [Suspect]
     Active Substance: FUROSEMIDE
     Indication: Diuretic therapy
     Route: 048
     Dates: start: 20220810, end: 20220827
  6. EPLERENONE [Suspect]
     Active Substance: EPLERENONE
     Indication: Diuretic therapy
     Route: 048
     Dates: start: 20130801, end: 20220628
  7. EPLERENONE [Suspect]
     Active Substance: EPLERENONE
     Indication: Diuretic therapy
     Route: 048
     Dates: start: 20220810, end: 20220827
  8. LEVOTHYROXINE [Concomitant]
     Active Substance: LEVOTHYROXINE
     Indication: Hypothyroidism
     Route: 048
     Dates: start: 20220523, end: 20220619
  9. LEVOTHYROXINE [Concomitant]
     Active Substance: LEVOTHYROXINE
     Route: 048
     Dates: start: 20220810
  10. TENOFOVIR [Concomitant]
     Active Substance: TENOFOVIR
     Indication: Hepatitis B
     Route: 048
     Dates: start: 20120125
  11. OMEPRAZOLE [Concomitant]
     Active Substance: OMEPRAZOLE
     Indication: Prophylaxis
     Route: 048
     Dates: start: 20081008
  12. RIFAXIMIN [Concomitant]
     Active Substance: RIFAXIMIN
     Indication: Prophylaxis
     Route: 048
     Dates: start: 20100512
  13. NORFLOXACIN [Concomitant]
     Active Substance: NORFLOXACIN
     Indication: Prophylaxis
     Route: 048
     Dates: start: 20130401

REACTIONS (2)
  - Acute kidney injury [Recovered/Resolved]
  - Hepatic encephalopathy [Recovered/Resolved]

NARRATIVE: CASE EVENT DATE: 20220804
